FAERS Safety Report 23170771 (Version 1)
Quarter: 2023Q4

REPORT INFORMATION
  Report Type: Spontaneous
  Country: US (occurrence: None)
  Receive Date: 20231109
  Receipt Date: 20231109
  Transmission Date: 20240109
  Serious: Yes (Hospitalization, Disabling, Other)
  Sender: FDA-Public Use
  Company Number: None

PATIENT
  Age: 60 Year
  Sex: Female
  Weight: 108 kg

DRUGS (1)
  1. LATUDA [Suspect]
     Active Substance: LURASIDONE HYDROCHLORIDE

REACTIONS (7)
  - Musculoskeletal stiffness [None]
  - Arthralgia [None]
  - Brain fog [None]
  - Restlessness [None]
  - Tic [None]
  - Drug hypersensitivity [None]
  - Therapy change [None]

NARRATIVE: CASE EVENT DATE: 20231010
